FAERS Safety Report 4380062-0 (Version None)
Quarter: 2004Q2

REPORT INFORMATION
  Report Type: 
  Country: None (occurrence: None)
  Receive Date: 20040614
  Receipt Date: 20040527
  Transmission Date: 20050107
  Serious: Yes (Other)
  Sender: FDA-Public Use
  Company Number: DSA_24505_2004

PATIENT
  Age: 42 Year
  Sex: Female

DRUGS (11)
  1. HERBESSER [Suspect]
     Indication: PRINZMETAL ANGINA
     Dosage: DF PO
     Route: 048
     Dates: start: 20040301
  2. ZITHROMAX [Suspect]
     Dosage: DF PO
     Route: 048
     Dates: start: 20040312, end: 20040314
  3. ITOROL [Suspect]
     Dosage: DF PO
     Route: 048
     Dates: start: 20040301
  4. NATRIX [Suspect]
     Dosage: DF PO
     Route: 048
     Dates: start: 20040301
  5. MYOCOR [Suspect]
     Dosage: DF
     Dates: start: 20040301
  6. LOXONIN [Suspect]
     Indication: HEADACHE
     Dosage: DF PO
     Route: 048
     Dates: start: 20040301
  7. KETEK [Suspect]
     Dosage: DF PO
     Route: 048
     Dates: start: 20040311, end: 20040313
  8. PENTICILLIN [Suspect]
     Dosage: DF IV
     Route: 042
     Dates: start: 20040312, end: 20040314
  9. FLUMARIN [Suspect]
     Dosage: DF SC
     Route: 058
     Dates: start: 20040314, end: 20040315
  10. MAXIPIME [Suspect]
     Dosage: DF IV
     Route: 042
     Dates: start: 20040315, end: 20040316
  11. NONPRESCRIPTION MEDICINES [Concomitant]

REACTIONS (3)
  - ACUTE TONSILLITIS [None]
  - CONJUNCTIVITIS [None]
  - STEVENS-JOHNSON SYNDROME [None]
